FAERS Safety Report 7109263-5 (Version None)
Quarter: 2010Q4

REPORT INFORMATION
  Report Type: 
  Country: None (occurrence: None)
  Receive Date: 20101117
  Receipt Date: 20101108
  Transmission Date: 20110411
  Serious: Yes (Hospitalization)
  Sender: FDA-Public Use
  Company Number: US-ASTRAZENECA-2010SE52830

PATIENT
  Age: 58 Year
  Sex: Female

DRUGS (3)
  1. NEXIUM [Suspect]
     Indication: PROPHYLAXIS AGAINST GASTROINTESTINAL ULCER
     Route: 048
     Dates: start: 20080101
  2. NAPROXEN [Concomitant]
     Indication: RHEUMATOID ARTHRITIS
  3. A LOT OF OTHER MEDICATIONS [Concomitant]

REACTIONS (1)
  - HIP ARTHROPLASTY [None]
